FAERS Safety Report 5479668-7 (Version None)
Quarter: 2007Q4

REPORT INFORMATION
  Report Type: 
  Country: None (occurrence: None)
  Receive Date: 20071008
  Receipt Date: 20070925
  Transmission Date: 20080405
  Serious: Yes (Hospitalization)
  Sender: FDA-Public Use
  Company Number: B0489766A

PATIENT
  Age: 67 Year
  Sex: Female

DRUGS (8)
  1. ROSIGLITAZONE [Suspect]
     Dosage: 8MG PER DAY
     Route: 065
  2. LOPRESSOR [Concomitant]
     Dosage: 50MG PER DAY
     Route: 065
  3. LISINOPRIL [Concomitant]
     Dosage: 10MG PER DAY
     Route: 065
  4. HYDROCHLOROTHIAZIDE [Concomitant]
     Dosage: 50MG PER DAY
     Route: 065
  5. FUROSEMIDE [Concomitant]
     Dosage: 40MG PER DAY
     Route: 065
  6. REPAGLINIDE [Concomitant]
     Dosage: 2MG PER DAY
     Route: 065
  7. GABAPENTIN [Concomitant]
     Indication: SCIATICA
     Dosage: 200MG TWICE PER DAY
     Route: 065
  8. LEVOTHYROXINE SODIUM [Concomitant]
     Dosage: 200UG PER DAY
     Route: 065

REACTIONS (25)
  - ANXIETY [None]
  - BLOOD CREATININE INCREASED [None]
  - BLOOD THYROID STIMULATING HORMONE INCREASED [None]
  - BLOOD UREA INCREASED [None]
  - BRAIN NATRIURETIC PEPTIDE INCREASED [None]
  - CARDIAC FAILURE CONGESTIVE [None]
  - CARDIOMEGALY [None]
  - DIASTOLIC DYSFUNCTION [None]
  - DYSPNOEA [None]
  - FLUID OVERLOAD [None]
  - FLUID RETENTION [None]
  - GENERALISED OEDEMA [None]
  - HAEMOGLOBIN DECREASED [None]
  - HEART SOUNDS ABNORMAL [None]
  - IRON BINDING CAPACITY TOTAL INCREASED [None]
  - LEFT VENTRICULAR HYPERTROPHY [None]
  - OEDEMA PERIPHERAL [None]
  - ORTHOPNOEA [None]
  - PITTING OEDEMA [None]
  - RALES [None]
  - SERUM FERRITIN DECREASED [None]
  - SINUS TACHYCARDIA [None]
  - WAIST CIRCUMFERENCE INCREASED [None]
  - WEIGHT INCREASED [None]
  - WHITE BLOOD CELL COUNT DECREASED [None]
